FAERS Safety Report 9249036 (Version 1)
Quarter: 2013Q1

REPORT INFORMATION
  Report Type: Spontaneous
  Country: US (occurrence: None)
  Receive Date: 20130305
  Receipt Date: 20130305
  Transmission Date: 20140127
  Serious: Yes (Disabling)
  Sender: FDA-Public Use
  Company Number: 163-21880-12061493

PATIENT
  Age: 77 Year
  Sex: Male
  Weight: 88.91 kg

DRUGS (2)
  1. REVLIMID [Suspect]
     Indication: PLASMA CELL MYELOMA
     Dosage: 25 MG, DAILY X 21 DAYS, PO
     Route: 048
     Dates: start: 201203, end: 20120529
  2. VELCADE [Suspect]
     Indication: PLASMA CELL MYELOMA
     Dosage: 2.6 MG, WEEKLY FOR 2 WEEKS, IV
     Route: 042
     Dates: start: 201104, end: 201110

REACTIONS (6)
  - Oedema peripheral [None]
  - Erythema [None]
  - Skin discolouration [None]
  - Ageusia [None]
  - Diarrhoea [None]
  - Hypoaesthesia [None]
